FAERS Safety Report 9641390 (Version 2)
Quarter: 2013Q4

REPORT INFORMATION
  Report Type: Spontaneous
  Country: US (occurrence: US)
  Receive Date: 20131023
  Receipt Date: 20131023
  Transmission Date: 20140711
  Serious: No
  Sender: FDA-Public Use
  Company Number: US-ABBVIE-13P-163-1033712-00

PATIENT
  Sex: Male
  Weight: 90.8 kg

DRUGS (2)
  1. LUPRON DEPOT [Suspect]
     Indication: PROSTATE CANCER
     Dates: start: 20121224
  2. FIRMAGON [Suspect]
     Indication: PROSTATE CANCER
     Dosage: STARTING DOSE

REACTIONS (1)
  - Drug administration error [Not Recovered/Not Resolved]
